FAERS Safety Report 20607507 (Version 1)
Quarter: 2022Q1

REPORT INFORMATION
  Report Type: Spontaneous
  Country: US (occurrence: None)
  Receive Date: 20220316
  Receipt Date: 20220316
  Transmission Date: 20220423
  Serious: Yes (Hospitalization)
  Sender: FDA-Public Use
  Company Number: None

PATIENT
  Age: 51 Year

DRUGS (1)
  1. MAYZENT [Suspect]
     Active Substance: SIPONIMOD

REACTIONS (5)
  - Multiple sclerosis [None]
  - Sepsis [None]
  - COVID-19 [None]
  - Sickle cell anaemia with crisis [None]
  - Pulmonary embolism [None]

NARRATIVE: CASE EVENT DATE: 20220315
